FAERS Safety Report 6599918-3 (Version None)
Quarter: 2010Q1

REPORT INFORMATION
  Report Type: 
  Country: None (occurrence: None)
  Receive Date: 20100224
  Receipt Date: 20100215
  Transmission Date: 20100710
  Serious: Yes (Other)
  Sender: FDA-Public Use
  Company Number: SE-WYE-H13728710

PATIENT
  Age: 60 Year
  Sex: Male

DRUGS (2)
  1. CORDARONE [Suspect]
     Indication: ATRIAL FLUTTER
     Dosage: DOSE UNKNOWN
     Route: 065
     Dates: end: 20071206
  2. CORDARONE [Suspect]
     Indication: ATRIAL FIBRILLATION

REACTIONS (4)
  - BONE PAIN [None]
  - CORNEAL DEPOSITS [None]
  - HYPERTHYROIDISM [None]
  - PAIN [None]
